FAERS Safety Report 6202369-4 (Version None)
Quarter: 2009Q2

REPORT INFORMATION
  Report Type: 
  Country: None (occurrence: None)
  Receive Date: 20090521
  Receipt Date: 20090521
  Transmission Date: 20091009
  Serious: Yes (Other)
  Sender: FDA-Public Use
  Company Number: None

PATIENT
  Age: 94 Year
  Sex: Female

DRUGS (1)
  1. LEVAQUIN [Suspect]
     Indication: PNEUMONIA
     Dosage: 500 MG X 1 DOSE
     Route: 042
     Dates: start: 20090501

REACTIONS (2)
  - INFUSION SITE ERYTHEMA [None]
  - INFUSION SITE RASH [None]
